FAERS Safety Report 24691459 (Version 1)
Quarter: 2024Q4

REPORT INFORMATION
  Report Type: Spontaneous
  Country: US (occurrence: None)
  Receive Date: 20241203
  Receipt Date: 20241203
  Transmission Date: 20250114
  Serious: Yes (Hospitalization)
  Sender: Public
  Company Number: None

PATIENT
  Sex: Male

DRUGS (4)
  1. CAPECITABINE [Suspect]
     Active Substance: CAPECITABINE
     Indication: Rectal cancer
     Dosage: FREQ: TAKE 4 TABLETS (2,000 MG TOTAL) BY MOUTH 2 (TWO) TIMES DAILY. MONDAY THRU FRIDAY WITH RADIATI
     Route: 048
     Dates: start: 20241101
  2. ELIQUIS [Concomitant]
     Active Substance: APIXABAN
  3. FOLIC ACID [Concomitant]
     Active Substance: FOLIC ACID
  4. SUBOXONE [Concomitant]
     Active Substance: BUPRENORPHINE HYDROCHLORIDE\NALOXONE HYDROCHLORIDE

REACTIONS (5)
  - Hypovolaemic shock [None]
  - Septic shock [None]
  - Diarrhoea [None]
  - Hypophagia [None]
  - Deep vein thrombosis [None]
